FAERS Safety Report 5990086-5 (Version None)
Quarter: 2008Q4

REPORT INFORMATION
  Report Type: 
  Country: None (occurrence: None)
  Receive Date: 20081211
  Receipt Date: 20081205
  Transmission Date: 20090506
  Serious: Yes (Hospitalization)
  Sender: FDA-Public Use
  Company Number: FR-BRISTOL-MYERS SQUIBB COMPANY-14439194

PATIENT
  Age: 66 Year
  Sex: Female

DRUGS (4)
  1. GLUCOPHAGE [Suspect]
     Dosage: GLUCOPHAGE 500MG, MORNING + EVENING
  2. CRESTOR [Suspect]
  3. NEXIUM [Suspect]
  4. SEROPLEX [Suspect]

REACTIONS (2)
  - ANGIOEDEMA [None]
  - MALAISE [None]
